FAERS Safety Report 8454011-X (Version None)
Quarter: 2012Q2

REPORT INFORMATION
  Report Type: 
  Country: None (occurrence: None)
  Receive Date: 20120620
  Receipt Date: 20120607
  Transmission Date: 20120825
  Serious: No
  Sender: FDA-Public Use
  Company Number: US-ASTRAZENECA-2012SE38284

PATIENT
  Age: 75 Year
  Sex: Female
  Weight: 54.4 kg

DRUGS (2)
  1. CRESTOR [Suspect]
     Indication: LOW DENSITY LIPOPROTEIN INCREASED
     Dosage: EVERY  OTHER DAY
     Route: 048
  2. ASPIRIN [Concomitant]

REACTIONS (2)
  - OFF LABEL USE [None]
  - PAIN IN EXTREMITY [None]
